FAERS Safety Report 4269410-X (Version None)
Quarter: 2004Q1

REPORT INFORMATION
  Report Type: 
  Country: None (occurrence: None)
  Receive Date: 20040112
  Receipt Date: 20040112
  Transmission Date: 20041129
  Serious: Yes (Hospitalization)
  Sender: FDA-Public Use
  Company Number: None

PATIENT
  Sex: Male

DRUGS (12)
  1. PREDNISONE [Suspect]
     Indication: OSTEOARTHRITIS
     Dosage: 325 QD
  2. ASPIRIN [Suspect]
     Indication: CORONARY ARTERY DISEASE
     Dosage: 40 MG QD
  3. AMLODIPINE BESYLATE [Concomitant]
  4. ATROVENT [Concomitant]
  5. ALBUTEROL [Concomitant]
  6. CALCIUM CARBONATE [Concomitant]
  7. TERAZOSIN HCL [Concomitant]
  8. CLONIDINE [Concomitant]
  9. EPOETIN ALFA [Concomitant]
  10. FE GLUC [Concomitant]
  11. FLUCONAZOLE [Concomitant]
  12. INSULIN [Concomitant]

REACTIONS (2)
  - GASTROINTESTINAL HAEMORRHAGE [None]
  - MELAENA [None]
